FAERS Safety Report 16463568 (Version 2)
Quarter: 2019Q3

REPORT INFORMATION
  Report Type: Report from Study
  Country: IT (occurrence: IT)
  Receive Date: 20190621
  Receipt Date: 20190730
  Transmission Date: 20191004
  Serious: Yes (Hospitalization)
  Sender: FDA-Public Use
  Company Number: IT-PFIZER INC-2019259480

PATIENT
  Age: 9 Year
  Sex: Male
  Weight: 37 kg

DRUGS (19)
  1. BACTRIM [Concomitant]
     Active Substance: SULFAMETHOXAZOLE\TRIMETHOPRIM
     Dosage: 2 DF, UNK
     Route: 048
  2. METHOTREXATE SODIUM. [Suspect]
     Active Substance: METHOTREXATE SODIUM
     Indication: ACUTE LYMPHOCYTIC LEUKAEMIA
     Dosage: 12 MG, CYCLIC
     Route: 037
     Dates: start: 20181115, end: 20181129
  3. MYCOSTATIN [Concomitant]
     Active Substance: NYSTATIN
     Dosage: 15 ML, UNK
     Route: 048
  4. IG VENA [Concomitant]
     Active Substance: HUMAN IMMUNOGLOBULIN G
     Indication: BLOOD IMMUNOGLOBULIN G DECREASED
     Dosage: 15 G, UNK
     Route: 042
     Dates: start: 20181207, end: 20181207
  5. UROMITEXAN [Suspect]
     Active Substance: MESNA
     Indication: ACUTE LYMPHOCYTIC LEUKAEMIA
     Dosage: 82 MG, CYCLIC
     Route: 042
     Dates: start: 20181130, end: 20181130
  6. ENTEROGERMINA [BACILLUS CLAUSII] [Concomitant]
     Dosage: 1 DF, UNK
     Route: 048
     Dates: start: 20181207
  7. URBASON [METHYLPREDNISOLONE] [Concomitant]
     Active Substance: METHYLPREDNISOLONE
     Dosage: 10 MG, UNK
     Route: 037
     Dates: start: 20181115, end: 20181129
  8. ENDOXAN-BAXTER [Suspect]
     Active Substance: CYCLOPHOSPHAMIDE
     Dosage: 234 MG, CYCLIC
     Route: 042
     Dates: start: 20181130, end: 20181130
  9. ONCASPAR [Suspect]
     Active Substance: PEGASPARGASE
     Indication: ACUTE LYMPHOCYTIC LEUKAEMIA
     Dosage: 2925 KIU, CYCLIC
     Route: 042
     Dates: start: 20181204, end: 20181226
  10. DEBRIDAT [TRIMEBUTINE MALEATE] [Concomitant]
     Active Substance: TRIMEBUTINE MALEATE
     Dosage: 0.5 DF, UNK
     Route: 042
     Dates: start: 20181207
  11. ENDOXAN-BAXTER [Suspect]
     Active Substance: CYCLOPHOSPHAMIDE
     Indication: ACUTE LYMPHOCYTIC LEUKAEMIA
     Dosage: 468 MG, CYCLIC
     Route: 042
     Dates: start: 20181201, end: 20181202
  12. DILATREND [Concomitant]
     Active Substance: CARVEDILOL
     Dosage: 3.12 MG, UNK
     Route: 048
  13. PERFALGAN [Concomitant]
     Active Substance: ACETAMINOPHEN
     Dosage: 560 MG, UNK
     Route: 042
     Dates: start: 20181207, end: 20181207
  14. UROMITEXAN [Suspect]
     Active Substance: MESNA
     Dosage: 492 MG, CYCLIC
     Route: 042
     Dates: start: 20181201, end: 20181202
  15. VINCRISTINE SULFATE. [Suspect]
     Active Substance: VINCRISTINE SULFATE
     Indication: ACUTE LYMPHOCYTIC LEUKAEMIA
     Dosage: 1.75 MG, CYCLIC
     Route: 042
     Dates: start: 20181129, end: 20181204
  16. METHOTREXATE SODIUM. [Suspect]
     Active Substance: METHOTREXATE SODIUM
     Dosage: 5850 MG, CYCLIC
     Route: 042
     Dates: start: 20181115, end: 20181221
  17. UROMITEXAN [Suspect]
     Active Substance: MESNA
     Dosage: 164 MG, CYCLIC
     Route: 042
     Dates: start: 20181203, end: 20181203
  18. ANTRA [OMEPRAZOLE] [Concomitant]
     Active Substance: OMEPRAZOLE
     Dosage: 40 MG, UNK
     Route: 042
  19. IG VENA [Concomitant]
     Active Substance: HUMAN IMMUNOGLOBULIN G
     Dosage: UNK

REACTIONS (1)
  - Aplasia [Recovered/Resolved]

NARRATIVE: CASE EVENT DATE: 20181210
